FAERS Safety Report 14057852 (Version 1)
Quarter: 2017Q4

REPORT INFORMATION
  Report Type: Spontaneous
  Country: US (occurrence: US)
  Receive Date: 20171006
  Receipt Date: 20171006
  Transmission Date: 20180321
  Serious: Yes (Other)
  Sender: FDA-Public Use
  Company Number: US-REGENERON PHARMACEUTICALS, INC.-2017-23233

PATIENT

DRUGS (1)
  1. EYLEA [Suspect]
     Active Substance: AFLIBERCEPT
     Indication: PRODUCT USED FOR UNKNOWN INDICATION
     Dosage: UNK, LAST DOSE ADMINISTERED
     Dates: start: 20170928, end: 20170928

REACTIONS (6)
  - Vitreal cells [Unknown]
  - Vitreous haze [Unknown]
  - Vision blurred [Unknown]
  - Anterior chamber cell [Unknown]
  - Eye inflammation [Unknown]
  - Eye pain [Unknown]

NARRATIVE: CASE EVENT DATE: 20170929
